FAERS Safety Report 12526621 (Version 1)
Quarter: 2016Q3

REPORT INFORMATION
  Report Type: Spontaneous
  Country: US (occurrence: US)
  Receive Date: 20160705
  Receipt Date: 20160705
  Transmission Date: 20161109
  Serious: No
  Sender: FDA-Public Use
  Company Number: US-ENDO PHARMACEUTICALS INC.-2015-001746

PATIENT
  Age: 84 Year
  Sex: Male
  Weight: 77.18 kg

DRUGS (2)
  1. NEXIUM [Concomitant]
     Active Substance: ESOMEPRAZOLE MAGNESIUM
     Indication: PRODUCT USED FOR UNKNOWN INDICATION
  2. NYSTATIN SUSPENSION [Suspect]
     Active Substance: NYSTATIN
     Indication: OESOPHAGEAL INFECTION
     Dosage: 5 ML FOUR TIMES DAILY SWISH AND SWALLOW FOR 10 DAYS.
     Route: 048
     Dates: start: 20150618, end: 20150628

REACTIONS (1)
  - Increased upper airway secretion [Not Recovered/Not Resolved]

NARRATIVE: CASE EVENT DATE: 20150618
